FAERS Safety Report 6176421-6 (Version None)
Quarter: 2009Q2

REPORT INFORMATION
  Report Type: 
  Country: None (occurrence: None)
  Receive Date: 20090501
  Receipt Date: 20090422
  Transmission Date: 20091009
  Serious: Yes (Hospitalization)
  Sender: FDA-Public Use
  Company Number: JP-MERCK-0904USA03892

PATIENT
  Age: 42 Year
  Sex: Female

DRUGS (2)
  1. SINGULAIR [Suspect]
     Indication: ASTHMA
     Route: 048
     Dates: start: 20080501
  2. ONON [Suspect]
     Indication: ASTHMA
     Route: 048
     Dates: start: 20080501

REACTIONS (1)
  - ALLERGIC GRANULOMATOUS ANGIITIS [None]
